FAERS Safety Report 18956393 (Version 2)
Quarter: 2021Q1

REPORT INFORMATION
  Report Type: Spontaneous
  Country: US (occurrence: US)
  Receive Date: 20210302
  Receipt Date: 20210306
  Transmission Date: 20210420
  Serious: Yes (Other)
  Sender: FDA-Public Use
  Company Number: US-TEVA-2021-US-1884786

PATIENT
  Sex: Male

DRUGS (2)
  1. TESTOSTERONE TEVA [Suspect]
     Active Substance: TESTOSTERONE
     Dosage: DOSE: 2 PUMPS A DAY, FORM OF ADMIN: TOPICAL SOLUTION
     Route: 061
  2. TESTOSTERONE TEVA [Suspect]
     Active Substance: TESTOSTERONE
     Indication: BLOOD TESTOSTERONE DECREASED
     Dosage: FORM OF ADMIN: TOPICAL SOLUTION
     Route: 061

REACTIONS (3)
  - Erectile dysfunction [Unknown]
  - Drug ineffective [Unknown]
  - Blood testosterone decreased [Unknown]

NARRATIVE: CASE EVENT DATE: 2020
